FAERS Safety Report 8011348-6 (Version None)
Quarter: 2011Q4

REPORT INFORMATION
  Report Type: 
  Country: None (occurrence: None)
  Receive Date: 20111228
  Receipt Date: 20111220
  Transmission Date: 20120403
  Serious: No
  Sender: FDA-Public Use
  Company Number: US-B.I. PHARMACEUTICALS,INC./RIDGEFIELD-2011-BP-28519BP

PATIENT
  Sex: Male

DRUGS (2)
  1. PAPYA ENZYMES [Concomitant]
     Indication: DYSPEPSIA
  2. ZANTAC 75 [Suspect]
     Indication: DYSPEPSIA
     Route: 048
     Dates: start: 20111001

REACTIONS (2)
  - DRUG SCREEN POSITIVE [None]
  - FALSE POSITIVE INVESTIGATION RESULT [None]
